FAERS Safety Report 25477135 (Version 1)
Quarter: 2025Q2

REPORT INFORMATION
  Report Type: Spontaneous
  Country: CA (occurrence: CA)
  Receive Date: 20250625
  Receipt Date: 20250625
  Transmission Date: 20250716
  Serious: Yes (Other)
  Sender: CELLTRION
  Company Number: CA-PFIZER INC-PV202500049353

PATIENT

DRUGS (2)
  1. INFLECTRA [Suspect]
     Active Substance: INFLIXIMAB-DYYB
  2. INFLECTRA [Suspect]
     Active Substance: INFLIXIMAB-DYYB

REACTIONS (6)
  - Syncope [Unknown]
  - Back pain [Recovered/Resolved]
  - Feeling cold [Unknown]
  - Blood pressure systolic increased [Recovered/Resolved]
  - Flushing [Unknown]
  - Muscle spasms [Unknown]
